FAERS Safety Report 25275181 (Version 2)
Quarter: 2025Q2

REPORT INFORMATION
  Report Type: Report from Study
  Country: KR (occurrence: KR)
  Receive Date: 20250506
  Receipt Date: 20250512
  Transmission Date: 20250716
  Serious: Yes (Death, Hospitalization, Other)
  Sender: MERCK SHARP & DOHME LLC
  Company Number: KR-009507513-2267398

PATIENT
  Sex: Female

DRUGS (4)
  1. KEYTRUDA [Suspect]
     Active Substance: PEMBROLIZUMAB
     Indication: Cervix carcinoma
     Dates: start: 20250120, end: 20250120
  2. KEYTRUDA [Suspect]
     Active Substance: PEMBROLIZUMAB
     Indication: Cervix carcinoma
     Dates: start: 20250217, end: 20250217
  3. KEYTRUDA [Suspect]
     Active Substance: PEMBROLIZUMAB
     Indication: Cervix carcinoma
     Dates: start: 20250311, end: 20250311
  4. KEYTRUDA [Suspect]
     Active Substance: PEMBROLIZUMAB
     Indication: Cervix carcinoma
     Dates: start: 20250410, end: 20250410

REACTIONS (20)
  - Oncologic complication [Fatal]
  - Malignant neoplasm progression [Fatal]
  - Stoma care [Recovered/Resolved]
  - Oxygen therapy [Unknown]
  - Red blood cell transfusion [Unknown]
  - Bladder irrigation [Unknown]
  - Bladder irrigation [Unknown]
  - Hospitalisation [Recovered/Resolved]
  - Bladder irrigation [Unknown]
  - Red blood cell transfusion [Unknown]
  - Red blood cell transfusion [Unknown]
  - Nephrostomy [Unknown]
  - Postoperative care [Unknown]
  - Radiotherapy [Unknown]
  - Product use in unapproved indication [Unknown]
  - Maintenance of anaesthesia [Unknown]
  - Therapeutic embolisation [Unknown]
  - Enterostomy [Unknown]
  - Bladder irrigation [Unknown]
  - General anaesthesia [Unknown]

NARRATIVE: CASE EVENT DATE: 20250101
